FAERS Safety Report 10959017 (Version 1)
Quarter: 2015Q1

REPORT INFORMATION
  Report Type: Spontaneous
  Country: US (occurrence: US)
  Receive Date: 20150327
  Receipt Date: 20150327
  Transmission Date: 20150721
  Serious: Yes (Hospitalization)
  Sender: FDA-Public Use
  Company Number: US-AMGEN-USASP2015027312

PATIENT
  Age: 59 Year
  Sex: Female

DRUGS (1)
  1. ENBREL [Suspect]
     Active Substance: ETANERCEPT
     Indication: PSORIATIC ARTHROPATHY
     Dosage: 25 MG, 2 TIMES/WK
     Route: 065
     Dates: start: 20031216

REACTIONS (5)
  - Impaired healing [Recovered/Resolved]
  - Wound [Recovered/Resolved]
  - Fibula fracture [Recovered/Resolved]
  - Tibia fracture [Recovered/Resolved]
  - Ankle fracture [Recovered/Resolved]
